FAERS Safety Report 13209054 (Version 1)
Quarter: 2017Q1

REPORT INFORMATION
  Report Type: Report from Study
  Country: None (occurrence: BR)
  Receive Date: 20170209
  Receipt Date: 20170209
  Transmission Date: 20170428
  Serious: Yes (Hospitalization, Other)
  Sender: FDA-Public Use
  Company Number: BR-ABBVIE-17P-020-1867187-00

PATIENT
  Age: 65 Year
  Sex: Female
  Weight: 60 kg

DRUGS (5)
  1. HUMIRA [Suspect]
     Active Substance: ADALIMUMAB
     Route: 058
  2. HUMIRA [Suspect]
     Active Substance: ADALIMUMAB
     Indication: RHEUMATOID ARTHRITIS
     Route: 058
     Dates: start: 20110101
  3. PREDNISOLONE. [Concomitant]
     Active Substance: PREDNISOLONE
     Indication: PRODUCT USED FOR UNKNOWN INDICATION
     Route: 048
     Dates: start: 201508
  4. FAMOTIDINE. [Concomitant]
     Active Substance: FAMOTIDINE
     Indication: PRODUCT USED FOR UNKNOWN INDICATION
     Route: 048
     Dates: start: 201508
  5. PREMARIN [Concomitant]
     Active Substance: ESTROGENS, CONJUGATED
     Indication: MENOPAUSE
     Route: 048

REACTIONS (12)
  - Dyspnoea [Recovered/Resolved]
  - Infection [Recovered/Resolved]
  - Confusional state [Recovering/Resolving]
  - Pain in extremity [Recovered/Resolved]
  - Weight decreased [Recovering/Resolving]
  - Abasia [Recovered/Resolved]
  - Abdominal pain upper [Recovered/Resolved]
  - Memory impairment [Recovering/Resolving]
  - Anaemia [Unknown]
  - Peripheral swelling [Recovered/Resolved]
  - Coma [Unknown]
  - Pyrexia [Unknown]

NARRATIVE: CASE EVENT DATE: 20161126
